FAERS Safety Report 8082795-1 (Version None)
Quarter: 2012Q1

REPORT INFORMATION
  Report Type: 
  Country: None (occurrence: None)
  Receive Date: 20120127
  Receipt Date: 20110211
  Transmission Date: 20120608
  Serious: No
  Sender: FDA-Public Use
  Company Number: US-ABBOTT-11P-163-0705086-00

PATIENT
  Sex: Female
  Weight: 61.744 kg

DRUGS (3)
  1. METHOTREXATE [Concomitant]
     Indication: RHEUMATOID ARTHRITIS
  2. BONIVA [Concomitant]
     Indication: OSTEOPOROSIS
  3. HUMIRA [Suspect]
     Indication: PSORIATIC ARTHROPATHY
     Dates: start: 20090101

REACTIONS (3)
  - RESPIRATORY TRACT CONGESTION [None]
  - NASOPHARYNGITIS [None]
  - PAIN [None]
